FAERS Safety Report 6637014-7 (Version None)
Quarter: 2010Q1

REPORT INFORMATION
  Report Type: 
  Country: None (occurrence: None)
  Receive Date: 20100316
  Receipt Date: 20100308
  Transmission Date: 20100710
  Serious: Yes (Life-Threatening, Hospitalization)
  Sender: FDA-Public Use
  Company Number: GR-BRACCO-000015

PATIENT
  Age: 40 Year
  Sex: Male

DRUGS (3)
  1. MULTIHANCE [Suspect]
     Indication: ANGIOGRAM
     Dates: start: 20100304, end: 20100304
  2. T4 [Concomitant]
  3. ISCOVER [Concomitant]

REACTIONS (5)
  - EPISTAXIS [None]
  - FLUSHING [None]
  - HAEMOPTYSIS [None]
  - NAUSEA [None]
  - PHARYNGEAL HAEMORRHAGE [None]
